FAERS Safety Report 25477482 (Version 5)
Quarter: 2025Q3

REPORT INFORMATION
  Report Type: Report from Study
  Country: CA (occurrence: CA)
  Receive Date: 20250625
  Receipt Date: 20250719
  Transmission Date: 20251020
  Serious: Yes (Hospitalization, Other)
  Sender: CELLTRION
  Company Number: CA-CELLTRION INC.-2025CA019582

PATIENT

DRUGS (7)
  1. INFLIXIMAB-DYYB [Suspect]
     Active Substance: INFLIXIMAB-DYYB
     Indication: Ankylosing spondylitis
     Route: 042
     Dates: start: 20250602
  2. INFLIXIMAB-DYYB [Suspect]
     Active Substance: INFLIXIMAB-DYYB
     Route: 042
     Dates: start: 20250602
  3. PREDNISOLONE [Concomitant]
     Active Substance: PREDNISOLONE
     Route: 048
  4. PREGABALIN [Concomitant]
     Active Substance: PREGABALIN
  5. MESALAMINE [Concomitant]
     Active Substance: MESALAMINE
  6. IRON SUCROSE [Concomitant]
     Active Substance: IRON SUCROSE
  7. MESALAMINE [Concomitant]
     Active Substance: MESALAMINE

REACTIONS (16)
  - Rhinorrhoea [Recovered/Resolved]
  - Blood pressure decreased [Unknown]
  - Heart rate increased [Unknown]
  - Tremor [Unknown]
  - Cough [Recovered/Resolved]
  - Vomiting [Unknown]
  - Abdominal pain lower [Unknown]
  - Viral skin infection [Recovered/Resolved]
  - Fatigue [Unknown]
  - Nausea [Unknown]
  - Pruritus [Recovered/Resolved]
  - Pyrexia [Recovered/Resolved]
  - Chest pain [Unknown]
  - Pain [Not Recovered/Not Resolved]
  - Therapy change [Unknown]
  - Underdose [Unknown]
